FAERS Safety Report 24675471 (Version 1)
Quarter: 2024Q4

REPORT INFORMATION
  Report Type: Spontaneous
  Country: US (occurrence: US)
  Receive Date: 20241128
  Receipt Date: 20241128
  Transmission Date: 20250115
  Serious: Yes (Hospitalization, Other)
  Sender: ABBVIE
  Company Number: US-ABBVIE-6014094

PATIENT
  Age: 75 Year
  Sex: Female
  Weight: 98 kg

DRUGS (12)
  1. REFRESH PLUS [Suspect]
     Active Substance: CARBOXYMETHYLCELLULOSE SODIUM
     Indication: Dry eye
     Dosage: TIME INTERVAL: AS NECESSARY: 1 DROP EACH EYE
     Route: 047
  2. FUROSEMIDE [Concomitant]
     Active Substance: FUROSEMIDE
     Indication: Fluid retention
  3. PRAMIPEXOLE [Concomitant]
     Active Substance: PRAMIPEXOLE\PRAMIPEXOLE DIHYDROCHLORIDE
     Indication: Muscle spasms
  4. LOSARTAN [Concomitant]
     Active Substance: LOSARTAN
     Indication: Blood pressure measurement
  5. BACLOFEN [Concomitant]
     Active Substance: BACLOFEN
     Indication: Muscle spasms
  6. TOLTERODINE TARTRATE [Concomitant]
     Active Substance: TOLTERODINE TARTRATE
     Indication: Bladder disorder
  7. HYDROCODONE [Concomitant]
     Active Substance: HYDROCODONE
     Indication: Back injury
  8. DULOXETINE [Concomitant]
     Active Substance: DULOXETINE
     Indication: Bladder disorder
  9. GABAPENTIN [Concomitant]
     Active Substance: GABAPENTIN
     Indication: Back injury
  10. IRON [Concomitant]
     Active Substance: IRON
     Indication: Mineral supplementation
  11. PRALUENT [Concomitant]
     Active Substance: ALIROCUMAB
     Indication: Blood cholesterol
  12. POTASSIUM CHLORIDE [Concomitant]
     Active Substance: POTASSIUM CHLORIDE
     Indication: Fluid retention

REACTIONS (9)
  - Myocardial infarction [Recovered/Resolved]
  - Foreign body sensation in eyes [Not Recovered/Not Resolved]
  - Fatigue [Recovered/Resolved]
  - Vein collapse [Recovered/Resolved]
  - Weight decreased [Recovered/Resolved]
  - Pneumonia [Recovered/Resolved]
  - Pneumonia [Recovered/Resolved]
  - Cardiac dysfunction [Recovered/Resolved]
  - Unevaluable event [Recovered/Resolved]

NARRATIVE: CASE EVENT DATE: 20240101
